FAERS Safety Report 5392040-3 (Version None)
Quarter: 2007Q3

REPORT INFORMATION
  Report Type: 
  Country: None (occurrence: None)
  Receive Date: 20070718
  Receipt Date: 20070718
  Transmission Date: 20080115
  Serious: Yes (Life-Threatening)
  Sender: FDA-Public Use
  Company Number: None

PATIENT
  Age: 67 Year
  Sex: Female
  Weight: 78.4723 kg

DRUGS (2)
  1. DOXIL [Suspect]
     Indication: OVARIAN CANCER
     Dosage: 50MG/M2 IV Q28D IV
     Route: 042
     Dates: start: 20060411, end: 20070507
  2. ATORVASTATIN CALCIUM [Suspect]
     Dosage: 10MG TAB DAILY PO
     Route: 048
     Dates: start: 20060411, end: 20070604

REACTIONS (1)
  - RADICULOPATHY [None]
